FAERS Safety Report 7428728-X (Version None)
Quarter: 2011Q2

REPORT INFORMATION
  Report Type: 
  Country: None (occurrence: None)
  Receive Date: 20110421
  Receipt Date: 20110415
  Transmission Date: 20111010
  Serious: Yes (Other)
  Sender: FDA-Public Use
  Company Number: US-B.I. PHARMACEUTICALS,INC./RIDGEFIELD-2011-BP-08701BP

PATIENT
  Age: 76 Year
  Sex: Female

DRUGS (10)
  1. LEVOTHYROXINE SODIUM [Concomitant]
     Indication: HYPOTHYROIDISM
     Dosage: 75 MG
  2. HYDROCHLOROTHIAZIDE [Concomitant]
     Indication: OEDEMA PERIPHERAL
     Dosage: 12.5 MG
  3. PLAVIX [Concomitant]
     Dosage: 75 MG
  4. SOTALOL HCL [Concomitant]
     Indication: HYPERTENSION
     Dosage: 160 MG
  5. WARFARIN [Concomitant]
     Dosage: 5 MG
  6. PREMARIN [Concomitant]
     Indication: BLOOD OESTROGEN
     Dosage: 0.625 MG
  7. SOTALOL HCL [Concomitant]
     Indication: ARRHYTHMIA
  8. AMLODIPINE [Concomitant]
     Indication: HYPERTENSION
     Dosage: 5 MG
  9. PRADAXA [Suspect]
     Indication: CEREBROVASCULAR ACCIDENT PROPHYLAXIS
     Dosage: 300 MG
     Route: 048
     Dates: start: 20110301, end: 20110318
  10. PRADAXA [Suspect]
     Indication: ATRIAL FIBRILLATION

REACTIONS (7)
  - NIGHT SWEATS [None]
  - HYPERTENSION [None]
  - INSOMNIA [None]
  - GAIT DISTURBANCE [None]
  - TRANSIENT ISCHAEMIC ATTACK [None]
  - HEART RATE INCREASED [None]
  - FEELING ABNORMAL [None]
